FAERS Safety Report 9933654 (Version 2)
Quarter: 2014Q1

REPORT INFORMATION
  Report Type: Report from Study
  Country: US (occurrence: US)
  Receive Date: 20140228
  Receipt Date: 20140228
  Transmission Date: 20141002
  Serious: No
  Sender: FDA-Public Use
  Company Number: US-MYLANLABS-2013S1028042

PATIENT
  Age: 72 Year
  Sex: Male
  Weight: 88.45 kg

DRUGS (3)
  1. AMNESTEEM CAPSULES [Suspect]
     Indication: ACNE
     Route: 048
     Dates: start: 20131003, end: 20131110
  2. AMNESTEEM CAPSULES [Suspect]
     Indication: ROSACEA
     Route: 048
     Dates: start: 20131003, end: 20131110
  3. CRESTOR [Concomitant]
     Route: 048

REACTIONS (1)
  - Hyperlipidaemia [Recovered/Resolved]
